FAERS Safety Report 22745915 (Version 5)
Quarter: 2024Q1

REPORT INFORMATION
  Report Type: Report from Study
  Country: BR (occurrence: BR)
  Receive Date: 20230725
  Receipt Date: 20240110
  Transmission Date: 20240410
  Serious: Yes (Death, Hospitalization, Other)
  Sender: FDA-Public Use
  Company Number: BR-002147023-NVSC2023BR141405

PATIENT
  Sex: Female

DRUGS (2)
  1. KISQALI [Suspect]
     Active Substance: RIBOCICLIB
     Indication: Breast cancer female
     Dosage: UNK
     Route: 065
     Dates: start: 20230607
  2. MORPHINE [Concomitant]
     Active Substance: MORPHINE
     Indication: Product used for unknown indication
     Dosage: UNK (HIGH DOSES)
     Route: 065

REACTIONS (20)
  - Death [Fatal]
  - Eye pain [Unknown]
  - Headache [Unknown]
  - Head discomfort [Unknown]
  - Dehydration [Recovered/Resolved]
  - Hallucination [Recovered/Resolved]
  - Syncope [Unknown]
  - Eye disorder [Unknown]
  - Vomiting [Unknown]
  - Movement disorder [Not Recovered/Not Resolved]
  - Pain [Recovered/Resolved]
  - General physical health deterioration [Unknown]
  - Somnolence [Unknown]
  - Vision blurred [Not Recovered/Not Resolved]
  - Asthenia [Unknown]
  - Fatigue [Unknown]
  - Nausea [Recovered/Resolved]
  - Malaise [Recovered/Resolved]
  - Delusion [Recovered/Resolved]
  - Confusional state [Recovered/Resolved]

NARRATIVE: CASE EVENT DATE: 20230101
